FAERS Safety Report 5054472-2 (Version None)
Quarter: 2006Q2

REPORT INFORMATION
  Report Type: 
  Country: None (occurrence: None)
  Receive Date: 20060616
  Receipt Date: 20060316
  Transmission Date: 20061013
  Serious: Yes (Other)
  Sender: FDA-Public Use
  Company Number: 222650

PATIENT
  Age: 53 Year
  Sex: Female

DRUGS (2)
  1. AVASTIN [Suspect]
     Indication: BREAST CANCER METASTATIC
     Dates: start: 20050701, end: 20051018
  2. DOXIL [Concomitant]

REACTIONS (5)
  - BLOOD PRESSURE INCREASED [None]
  - CSF TEST ABNORMAL [None]
  - HEADACHE [None]
  - VOMITING [None]
  - WEIGHT DECREASED [None]
